FAERS Safety Report 7007728-8 (Version None)
Quarter: 2010Q3

REPORT INFORMATION
  Report Type: 
  Country: None (occurrence: None)
  Receive Date: 20100920
  Receipt Date: 20100907
  Transmission Date: 20110219
  Serious: Yes (Other)
  Sender: FDA-Public Use
  Company Number: 2010P1001330

PATIENT
  Age: 55 Year
  Sex: Male

DRUGS (2)
  1. DICLOFENAC SODIUM [Suspect]
     Indication: ARTHRALGIA
     Dosage: ;QD
  2. COROSOLIC ACID (NO PREP. NAME) [Suspect]
     Dosage: ;QD

REACTIONS (8)
  - ABDOMINAL PAIN [None]
  - HAEMODIALYSIS [None]
  - HYPOPERFUSION [None]
  - HYPOXIA [None]
  - LACTIC ACIDOSIS [None]
  - METABOLIC ACIDOSIS [None]
  - RENAL FAILURE ACUTE [None]
  - URINE OUTPUT DECREASED [None]
